FAERS Safety Report 20740141 (Version 1)
Quarter: 2022Q2

REPORT INFORMATION
  Report Type: Spontaneous
  Country: GB (occurrence: GB)
  Receive Date: 20220422
  Receipt Date: 20220422
  Transmission Date: 20220721
  Serious: Yes (Death, Hospitalization)
  Sender: FDA-Public Use
  Company Number: GB-BAYER-2022A045169

PATIENT
  Sex: Male

DRUGS (1)
  1. XOFIGO [Suspect]
     Active Substance: RADIUM RA-223 DICHLORIDE
     Dosage: FIRST DOSE
     Dates: start: 20220225, end: 20220225

REACTIONS (2)
  - Malignant neoplasm progression [Fatal]
  - Malaise [None]

NARRATIVE: CASE EVENT DATE: 20220101
